FAERS Safety Report 6370759-5 (Version None)
Quarter: 2009Q3

REPORT INFORMATION
  Report Type: 
  Country: None (occurrence: None)
  Receive Date: 20090923
  Receipt Date: 20080327
  Transmission Date: 20100115
  Serious: Yes (Other)
  Sender: FDA-Public Use
  Company Number: US-ASTRAZENECA-2006UW26670

PATIENT
  Sex: Female

DRUGS (10)
  1. SEROQUEL [Suspect]
     Indication: SLEEP DISORDER
     Dosage: 25 MG TO 100 MG AT NIGHT
     Route: 048
     Dates: start: 20070516
  2. SEROQUEL [Suspect]
     Route: 048
  3. ZYPREXA [Concomitant]
  4. CLONAZEPAM [Concomitant]
     Indication: SLEEP DISORDER
     Dosage: 1MG-2MG AT NIGHT
     Route: 048
     Dates: start: 20070104
  5. OXYCODONE HCL [Concomitant]
     Dosage: 80MG TO 160MG DAILY
     Route: 048
     Dates: start: 20070104
  6. LEVOTHYROXINE SODIUM [Concomitant]
     Indication: THYROID HORMONE REPLACEMENT THERAPY
     Dates: start: 20070117
  7. RISPERDAL [Concomitant]
     Indication: AFFECTIVE DISORDER
     Route: 048
     Dates: start: 20070117
  8. LAMICTAL [Concomitant]
     Indication: CONVULSION
     Dosage: 100MG-200MG DAILY
     Dates: start: 20070206
  9. OMEPRAZOLE [Concomitant]
     Indication: REFLUX OESOPHAGITIS
     Route: 048
     Dates: start: 20070423
  10. TRILEPTAL [Concomitant]
     Route: 048
     Dates: start: 20070423

REACTIONS (1)
  - PANCREATITIS [None]
